FAERS Safety Report 8859170 (Version 1)
Quarter: 2012Q4

REPORT INFORMATION
  Report Type: 
  Country: US (occurrence: US)
  Receive Date: 20121024
  Receipt Date: 20121024
  Transmission Date: 20130627
  Serious: No
  Sender: FDA-Public Use
  Company Number: US-PFIZER INC-2012265498

PATIENT
  Age: 52 Year
  Sex: Female
  Weight: 47.62 kg

DRUGS (4)
  1. GABAPENTIN [Suspect]
     Indication: FIBROMYALGIA
     Dosage: 300 mg, 3x/day
     Dates: start: 201210
  2. CANNABIS SATIVA SUBSP. INDICA TOP [Concomitant]
     Indication: FIBROMYALGIA
     Dosage: UNK
     Dates: start: 201210, end: 201210
  3. PAROXETINE [Concomitant]
     Indication: ANXIETY
     Dosage: 30 mg, daily
  4. FLEXERIL [Concomitant]
     Indication: CARPAL TUNNEL SYNDROME
     Dosage: 10 mg, 2x/day

REACTIONS (2)
  - Drug ineffective for unapproved indication [Unknown]
  - Off label use [Unknown]
